FAERS Safety Report 17026331 (Version 1)
Quarter: 2019Q4

REPORT INFORMATION
  Report Type: Spontaneous
  Country: US (occurrence: US)
  Receive Date: 20191113
  Receipt Date: 20191113
  Transmission Date: 20200122
  Serious: Yes (Other)
  Sender: FDA-Public Use
  Company Number: US-SA-2019SA311608

PATIENT
  Age: 60 Year
  Sex: Female

DRUGS (1)
  1. PRALUENT [Suspect]
     Active Substance: ALIROCUMAB
     Indication: BLOOD CHOLESTEROL
     Dosage: 75 MG/ML, QOW
     Dates: start: 20191002

REACTIONS (12)
  - Condition aggravated [Recovered/Resolved]
  - Skin exfoliation [Unknown]
  - Dry skin [Unknown]
  - Influenza like illness [Unknown]
  - Head discomfort [Recovered/Resolved]
  - Eczema [Unknown]
  - Pain [Unknown]
  - Hypersensitivity [Unknown]
  - Pruritus [Recovering/Resolving]
  - Condition aggravated [Unknown]
  - Contusion [Unknown]
  - Pulmonary congestion [Recovered/Resolved]

NARRATIVE: CASE EVENT DATE: 201910
